FAERS Safety Report 10920585 (Version 2)
Quarter: 2015Q1

REPORT INFORMATION
  Report Type: Report from Study
  Country: BR (occurrence: BR)
  Receive Date: 20150317
  Receipt Date: 20150331
  Transmission Date: 20150721
  Serious: Yes (Hospitalization)
  Sender: FDA-Public Use
  Company Number: PHHY2015BR031343

PATIENT
  Age: 78 Year
  Sex: Female

DRUGS (4)
  1. METFORMIN HYDROCHLORIDE. [Concomitant]
     Active Substance: METFORMIN HYDROCHLORIDE
     Indication: DIABETES MELLITUS
     Dosage: 1 DF OR 3 DF (850 MG), QD (PER DAY)
     Route: 065
  2. APRESOLINE HYDROCHLORIDE [Concomitant]
     Active Substance: HYDRALAZINE HYDROCHLORIDE
     Indication: HYPERTENSION
     Dosage: 3 DF (50 MG), QD (PER DAY)
     Route: 048
     Dates: start: 201005
  3. ATENSINA [Concomitant]
     Active Substance: CLONIDINE
     Indication: HYPERTENSION
     Dosage: 2 DF (150 MG), QD (PER DAY)
     Route: 048
     Dates: start: 201005
  4. DIOVAN [Suspect]
     Active Substance: VALSARTAN
     Indication: ARRHYTHMIA
     Dosage: 1 DF (320 MG), QD
     Route: 048
     Dates: start: 201003

REACTIONS (4)
  - Blood glucose decreased [Recovering/Resolving]
  - Hypertension [Recovered/Resolved]
  - Renal disorder [Unknown]
  - Product use issue [Unknown]

NARRATIVE: CASE EVENT DATE: 201502
